FAERS Safety Report 7807134-X (Version None)
Quarter: 2011Q4

REPORT INFORMATION
  Report Type: 
  Country: None (occurrence: None)
  Receive Date: 20111011
  Receipt Date: 20110928
  Transmission Date: 20120403
  Serious: Yes (Hospitalization, Other)
  Sender: FDA-Public Use
  Company Number: US-ELI_LILLY_AND_COMPANY-US201002004522

PATIENT
  Sex: Female

DRUGS (3)
  1. FORTEO [Suspect]
     Indication: OSTEOPOROSIS
     Dosage: 20 UG, DAILY (1/D)
     Dates: start: 20091001
  2. FORTEO [Suspect]
     Dosage: 20 UG, DAILY (1/D)
  3. FORTEO [Suspect]
     Dosage: 20 UG, DAILY (1/D)

REACTIONS (11)
  - DYSPNOEA [None]
  - PAIN IN EXTREMITY [None]
  - FATIGUE [None]
  - EMPHYSEMA [None]
  - INCREASED APPETITE [None]
  - HAEMOGLOBIN DECREASED [None]
  - ANAEMIA [None]
  - MALAISE [None]
  - LUNG DISORDER [None]
  - HEADACHE [None]
  - THYROID DISORDER [None]
